FAERS Safety Report 14305077 (Version 1)
Quarter: 2017Q4

REPORT INFORMATION
  Report Type: Report from Study
  Country: JP (occurrence: JP)
  Receive Date: 20171219
  Receipt Date: 20171219
  Transmission Date: 20180321
  Serious: Yes (Life-Threatening, Hospitalization, Other)
  Sender: FDA-Public Use
  Company Number: JP-OTSUKA-007722

PATIENT
  Age: 66 Year
  Sex: Male
  Weight: 60 kg

DRUGS (20)
  1. ARIPIPRAZOLE. [Suspect]
     Active Substance: ARIPIPRAZOLE
     Dosage: 30 MG, QD
     Route: 048
     Dates: start: 20090909, end: 20090917
  2. LONASEN [Suspect]
     Active Substance: BLONANSERIN
     Indication: SCHIZOPHRENIA
     Dosage: 12 MG, QD
     Route: 048
     Dates: start: 20090316, end: 20090917
  3. WINTERMIN [Suspect]
     Active Substance: PROMAZINE
     Indication: SCHIZOPHRENIA
     Dosage: 300 MG, QD
     Route: 048
     Dates: end: 20090303
  4. WINTERMIN [Suspect]
     Active Substance: PROMAZINE
     Dosage: 150 MG, QD
     Route: 048
     Dates: start: 20090819, end: 20090906
  5. MAGNESIUM OXIDE. [Suspect]
     Active Substance: MAGNESIUM OXIDE
     Indication: PRODUCT USED FOR UNKNOWN INDICATION
     Dosage: 1.5 G, DAILY DOSE
     Route: 048
     Dates: end: 20090917
  6. ARIPIPRAZOLE. [Suspect]
     Active Substance: ARIPIPRAZOLE
     Dosage: 12 MG, QD
     Route: 048
     Dates: start: 20091001, end: 20091019
  7. ABILIFY [Suspect]
     Active Substance: ARIPIPRAZOLE
     Indication: SCHIZOPHRENIA
     Dosage: 24 MG, QD
     Route: 048
     Dates: start: 20091020, end: 20091028
  8. ARIPIPRAZOLE. [Suspect]
     Active Substance: ARIPIPRAZOLE
     Indication: SCHIZOPHRENIA
     Dosage: 12 MG, QD
     Route: 048
     Dates: start: 20090819, end: 20090906
  9. WINTERMIN [Suspect]
     Active Substance: PROMAZINE
     Dosage: 250 MG, QD
     Route: 048
     Dates: start: 20090304, end: 20090818
  10. SHINLUCK [Suspect]
     Active Substance: SODIUM PICOSULFATE
     Indication: PRODUCT USED FOR UNKNOWN INDICATION
     Dosage: 5 MG, QD
     Route: 048
     Dates: end: 20090917
  11. GLUCONSAN K [Concomitant]
     Active Substance: POTASSIUM GLUCONATE
     Indication: PRODUCT USED FOR UNKNOWN INDICATION
     Dosage: 15 MEQ, DAILY DOSE
     Route: 048
     Dates: start: 20091026
  12. ARIPIPRAZOLE. [Suspect]
     Active Substance: ARIPIPRAZOLE
     Dosage: 24 MG, QD
     Route: 048
     Dates: start: 20090907, end: 20090908
  13. ABILIFY [Suspect]
     Active Substance: ARIPIPRAZOLE
     Dosage: 30 MG, QD
     Route: 048
     Dates: start: 20091029
  14. RISPERIDONE. [Suspect]
     Active Substance: RISPERIDONE
     Indication: SCHIZOPHRENIA
     Dosage: 12 MG, QD
     Route: 048
     Dates: start: 20090917, end: 20090917
  15. LONASEN [Suspect]
     Active Substance: BLONANSERIN
     Dosage: 12 MG, QD
     Route: 048
     Dates: start: 20090924, end: 20091108
  16. LONASEN [Suspect]
     Active Substance: BLONANSERIN
     Dosage: 24 MG, QD
     Route: 048
     Dates: start: 20091109
  17. WINTERMIN [Suspect]
     Active Substance: PROMAZINE
     Dosage: 75 MG, QD
     Route: 048
     Dates: start: 20090907, end: 20090917
  18. TASMOLIN [Suspect]
     Active Substance: BIPERIDEN
     Indication: PRODUCT USED FOR UNKNOWN INDICATION
     Dosage: 3 MG, QD
     Route: 048
     Dates: end: 20090917
  19. VASOLAN [Suspect]
     Active Substance: VERAPAMIL HYDROCHLORIDE
     Indication: PRODUCT USED FOR UNKNOWN INDICATION
     Dosage: 120 MG, QD
     Route: 048
     Dates: end: 20090917
  20. GLUCOBAY [Suspect]
     Active Substance: ACARBOSE
     Indication: PRODUCT USED FOR UNKNOWN INDICATION
     Dosage: 300 MG, QD
     Route: 048
     Dates: start: 20090512, end: 20090917

REACTIONS (5)
  - Urinary retention [Recovered/Resolved]
  - Intestinal obstruction [Recovered/Resolved]
  - Psychiatric symptom [Unknown]
  - Gastric ulcer [Recovered/Resolved]
  - Anaemia [Recovered/Resolved]

NARRATIVE: CASE EVENT DATE: 20090917
